FAERS Safety Report 5787898-X (Version None)
Quarter: 2008Q2

REPORT INFORMATION
  Report Type: 
  Country: None (occurrence: None)
  Receive Date: 20080625
  Receipt Date: 20080618
  Transmission Date: 20081010
  Serious: Yes (Death, Hospitalization, Congenital Anomaly)
  Sender: FDA-Public Use
  Company Number: A0644480A

PATIENT
  Sex: Male

DRUGS (15)
  1. PAXIL [Suspect]
     Indication: DEPRESSION
     Dosage: 20MG PER DAY
     Dates: start: 20020722, end: 20030201
  2. NYQUIL [Concomitant]
     Dosage: 2TBS AS REQUIRED
     Dates: start: 19950101
  3. VICKS DAYQUIL SINUS PRESSURE + PAIN RELIEF W/ IBUPROFEN [Concomitant]
     Dosage: 2TBS AS REQUIRED
     Dates: start: 19950101
  4. ADVIL [Concomitant]
     Dosage: 2CAP AS REQUIRED
     Dates: start: 19950101
  5. ALEVE [Concomitant]
     Dosage: 2CAP AS REQUIRED
     Dates: start: 19950101
  6. MOTRIN [Concomitant]
     Dosage: 2CAP AS REQUIRED
     Dates: start: 19950101
  7. NAPROXEN [Concomitant]
     Dosage: 2CAP AS REQUIRED
     Dates: start: 19950101
  8. BENADRYL [Concomitant]
     Indication: MULTIPLE ALLERGIES
     Dosage: 2CAP AS REQUIRED
     Dates: start: 19950101
  9. TYLENOL (CAPLET) [Concomitant]
     Dates: start: 20031001, end: 20050301
  10. VITAMIN TAB [Concomitant]
     Dates: start: 20030201
  11. MACROBID [Concomitant]
     Dates: start: 20030207
  12. PENICILLIN [Concomitant]
  13. AMOXICILLIN [Concomitant]
  14. LANSOPRAZOLE [Concomitant]
  15. RANITIDINE HCL [Concomitant]
     Dosage: 5MG TWICE PER DAY
     Route: 048

REACTIONS (48)
  - ANAEMIA [None]
  - APNOEA [None]
  - BLOOD BICARBONATE INCREASED [None]
  - BREATH SOUNDS ABNORMAL [None]
  - BRONCHOSPASM [None]
  - CARDIAC FAILURE CONGESTIVE [None]
  - CARDIAC MURMUR [None]
  - CONGENITAL PULMONARY ARTERY ANOMALY [None]
  - CYANOSIS [None]
  - DEVELOPMENTAL DELAY [None]
  - DRUG EXPOSURE DURING PREGNANCY [None]
  - DYSPNOEA [None]
  - EATING DISORDER [None]
  - GASTROOESOPHAGEAL REFLUX DISEASE [None]
  - HEAD TITUBATION [None]
  - HEART DISEASE CONGENITAL [None]
  - HIGH-PITCHED CRYING [None]
  - HYPERCAPNIA [None]
  - HYPOSPADIAS [None]
  - HYPOVENTILATION [None]
  - INJURY [None]
  - INTERCOSTAL RETRACTION [None]
  - LUNG DISORDER [None]
  - NASAL FLARING [None]
  - OXYGEN SATURATION DECREASED [None]
  - PATENT DUCTUS ARTERIOSUS [None]
  - PLEURAL EFFUSION [None]
  - PNEUMONIA PRIMARY ATYPICAL [None]
  - PSYCHOMOTOR SKILLS IMPAIRED [None]
  - PULMONARY ARTERY DILATATION [None]
  - PULMONARY HYPERTENSION [None]
  - PULMONARY HYPOPLASIA [None]
  - PYELOCALIECTASIS [None]
  - PYREXIA [None]
  - RESPIRATORY ARREST [None]
  - RESPIRATORY DISTRESS [None]
  - RESPIRATORY FAILURE [None]
  - RESPIRATORY RATE INCREASED [None]
  - RESPIRATORY SYNCYTIAL VIRUS BRONCHIOLITIS [None]
  - RESPIRATORY TRACT INFECTION [None]
  - RIB DEFORMITY [None]
  - RIGHT VENTRICULAR HYPERTROPHY [None]
  - SPINAL DEFORMITY [None]
  - STRIDOR [None]
  - TRACHEOMALACIA [None]
  - TRICUSPID VALVE INCOMPETENCE [None]
  - URINARY TRACT INFECTION [None]
  - VENTRICULAR SEPTAL DEFECT [None]
